FAERS Safety Report 18425304 (Version 1)
Quarter: 2020Q4

REPORT INFORMATION
  Report Type: Spontaneous
  Country: US (occurrence: US)
  Receive Date: 20201023
  Receipt Date: 20201023
  Transmission Date: 20210114
  Serious: No
  Sender: FDA-Public Use
  Company Number: None

PATIENT
  Age: 84 Year
  Sex: Female
  Weight: 74 kg

DRUGS (7)
  1. ANASTRAZOLE 1MG [Concomitant]
     Active Substance: ANASTROZOLE
  2. LABETALOL 200MG [Concomitant]
  3. LEVETIRACETAM 500MG [Concomitant]
     Active Substance: LEVETIRACETAM
  4. AMLODIPINE [Concomitant]
     Active Substance: AMLODIPINE BESYLATE
  5. METHIMAZOLE 5MG [Concomitant]
  6. IBRANCE [Suspect]
     Active Substance: PALBOCICLIB
     Indication: BREAST CANCER
     Route: 048
     Dates: start: 20201001
  7. OMEPRAZOLE 20MG [Concomitant]
     Active Substance: OMEPRAZOLE

REACTIONS (2)
  - Asthenia [None]
  - Platelet count decreased [None]

NARRATIVE: CASE EVENT DATE: 20201005
